FAERS Safety Report 7000960-9 (Version None)
Quarter: 2010Q3

REPORT INFORMATION
  Report Type: 
  Country: None (occurrence: None)
  Receive Date: 20100920
  Receipt Date: 20100113
  Transmission Date: 20110219
  Serious: Yes (Hospitalization)
  Sender: FDA-Public Use
  Company Number: US-ASTRAZENECA-2007UW09109

PATIENT
  Age: 28 Year
  Sex: Male
  Weight: 121.1 kg

DRUGS (5)
  1. SEROQUEL [Suspect]
     Indication: SCHIZOPHRENIA
     Dosage: 100 MG TK 2 TS PO HS.
     Route: 048
     Dates: start: 20020123
  2. SEROQUEL [Suspect]
     Route: 048
     Dates: end: 20060101
  3. RISPERDAL [Concomitant]
  4. ZYPREXA [Concomitant]
     Dosage: 10 MG TK 2 TS PO HS.
     Route: 048
     Dates: start: 20020123
  5. TRAZODONE HCL [Concomitant]
     Route: 048
     Dates: start: 20060928

REACTIONS (2)
  - BACK INJURY [None]
  - TYPE 2 DIABETES MELLITUS [None]
